FAERS Safety Report 8094945-1 (Version None)
Quarter: 2012Q1

REPORT INFORMATION
  Report Type: 
  Country: None (occurrence: None)
  Receive Date: 20120130
  Receipt Date: 20111010
  Transmission Date: 20120608
  Serious: Yes (Other)
  Sender: FDA-Public Use
  Company Number: GB-RANBAXY-2011RR-49104

PATIENT
  Age: 22 Year
  Sex: Female
  Weight: 159 kg

DRUGS (3)
  1. SERTRALINE HYDROCHLORIDE [Concomitant]
     Indication: BIPOLAR DISORDER
     Route: 065
  2. RISPERIDONE [Suspect]
     Indication: BIPOLAR DISORDER
     Dosage: 1 MG, QD
     Route: 065
  3. QUETIAPINE [Concomitant]
     Indication: BIPOLAR DISORDER
     Route: 065

REACTIONS (2)
  - WEIGHT INCREASED [None]
  - BENIGN INTRACRANIAL HYPERTENSION [None]
